FAERS Safety Report 12048596 (Version 1)
Quarter: 2016Q1

REPORT INFORMATION
  Report Type: Spontaneous
  Country: IT (occurrence: IT)
  Receive Date: 20160208
  Receipt Date: 20160208
  Transmission Date: 20160526
  Serious: Yes (Hospitalization)
  Sender: FDA-Public Use
  Company Number: PHHY2016IT014308

PATIENT
  Age: 73 Year
  Sex: Female

DRUGS (1)
  1. KETOPROFEN. [Suspect]
     Active Substance: KETOPROFEN
     Indication: SPINAL PAIN
     Route: 048

REACTIONS (3)
  - Anaemia [Recovering/Resolving]
  - Gastric ulcer haemorrhage [Recovering/Resolving]
  - Drug abuse [Unknown]

NARRATIVE: CASE EVENT DATE: 20160127
